FAERS Safety Report 9056638 (Version 1)
Quarter: 2013Q1

REPORT INFORMATION
  Report Type: Report from Study
  Country: SE (occurrence: SE)
  Receive Date: 20130204
  Receipt Date: 20130204
  Transmission Date: 20140127
  Serious: Yes (Hospitalization)
  Sender: FDA-Public Use
  Company Number: SE-PFIZER INC-SE-WYE-H09823709

PATIENT
  Age: 66 Year
  Sex: Female

DRUGS (36)
  1. RAPAMUNE [Suspect]
     Indication: PROPHYLAXIS AGAINST TRANSPLANT REJECTION
     Dosage: 1 MG-9 MG DAILY
     Route: 048
     Dates: start: 20031226
  2. PREDNISOLONE [Suspect]
     Indication: PROPHYLAXIS AGAINST TRANSPLANT REJECTION
     Dosage: 5-100 MG, ONCE TO TWICE DAILY
     Route: 048
     Dates: start: 20031226
  3. METHYLPREDNISOLONE [Suspect]
     Indication: PROPHYLAXIS AGAINST TRANSPLANT REJECTION
     Dosage: 500 MG, UNK
     Route: 042
     Dates: start: 20031225, end: 20040319
  4. METHYLPREDNISOLONE [Suspect]
     Dosage: 250 MG, 1X/DAY
     Route: 042
     Dates: start: 20040320
  5. HYDROCORTISONE [Suspect]
     Indication: PROPHYLAXIS AGAINST TRANSPLANT REJECTION
     Dosage: 50 MG, UNK
     Route: 042
     Dates: start: 20040220
  6. DACLIZUMAB [Suspect]
     Indication: PROPHYLAXIS AGAINST TRANSPLANT REJECTION
     Dosage: 100 MG, SINGLE INFUSION
     Route: 042
     Dates: start: 20031225, end: 20031225
  7. DACLIZUMAB [Suspect]
     Dosage: 100-50 MG EVERY OTHER WEEK
     Route: 042
     Dates: start: 20040109, end: 20040217
  8. MYCOPHENOLATE MOFETIL [Suspect]
     Indication: PROPHYLAXIS AGAINST TRANSPLANT REJECTION
     Dosage: 1 G, 1X/DAY
     Route: 048
     Dates: start: 20031225, end: 20031225
  9. MYCOPHENOLATE MOFETIL [Suspect]
     Dosage: 1 G, 2X/DAY
     Route: 048
     Dates: start: 20031226, end: 20040102
  10. MYCOPHENOLATE MOFETIL [Suspect]
     Dosage: 500 MG, 2X/DAY
     Route: 048
     Dates: start: 20040103, end: 20040119
  11. MYCOPHENOLATE MOFETIL [Suspect]
     Dosage: 375 MG, 2X/DAY
     Route: 048
     Dates: start: 20040322, end: 20040322
  12. MYCOPHENOLATE MOFETIL [Suspect]
     Dosage: 500 MG, 2X/DAY
     Route: 048
     Dates: start: 20040323, end: 20040329
  13. MYCOPHENOLATE MOFETIL [Suspect]
     Dosage: 250 MG, 2X/DAY
     Route: 048
     Dates: start: 20040330, end: 20061016
  14. MYCOPHENOLATE MOFETIL [Suspect]
     Indication: PROPHYLAXIS AGAINST TRANSPLANT REJECTION
     Dosage: 250 MG, 2X/DAY
     Route: 048
     Dates: start: 20040120, end: 20040321
  15. MYCOPHENOLATE MOFETIL [Suspect]
     Dosage: 375 MG, 2X/DAY
     Route: 048
     Dates: start: 20061017, end: 20061026
  16. MYCOPHENOLATE MOFETIL [Suspect]
     Dosage: 500 MG, 2X/DAY
     Route: 048
     Dates: start: 20061027, end: 20061107
  17. MYCOPHENOLATE MOFETIL [Suspect]
     Dosage: 375 MG, 2X/DAY
     Route: 048
     Dates: start: 20061108
  18. TACROLIMUS [Suspect]
     Indication: PROPHYLAXIS AGAINST TRANSPLANT REJECTION
     Dosage: 3 MG, 2X/DAY
     Route: 048
     Dates: start: 20040315, end: 20040318
  19. TACROLIMUS [Suspect]
     Dosage: 4 MG, 1X/DAY
     Route: 048
     Dates: start: 20040319, end: 20040321
  20. TACROLIMUS [Suspect]
     Dosage: 2.5 MG, 2X/DAY
     Route: 048
     Dates: start: 20040322, end: 20040323
  21. TACROLIMUS [Suspect]
     Dosage: 3 MG, 1X/DAY
     Dates: start: 20040324, end: 20040324
  22. TACROLIMUS [Suspect]
     Dosage: 2.5 MG, 2X/DAY
     Route: 048
     Dates: start: 20040325
  23. FUROSEMIDE [Concomitant]
     Dosage: 40 MG, 1X/DAY
     Route: 048
     Dates: start: 20031226
  24. PANTOPRAZOLE [Concomitant]
     Dosage: 40 MG, 1X/DAY
     Route: 048
     Dates: start: 20031227
  25. VALGANCICLOVIR [Concomitant]
     Dosage: UNREPORTED DOSE
     Route: 048
     Dates: end: 20031220
  26. VALGANCICLOVIR [Concomitant]
     Dosage: 450 MG, 1X/DAY
     Route: 048
     Dates: start: 20031229, end: 20040103
  27. VALGANCICLOVIR [Concomitant]
     Dosage: 225 MG, 1X/DAY
     Route: 048
     Dates: start: 20040104, end: 20040706
  28. VALGANCICLOVIR [Concomitant]
     Dosage: 225 MG, 1X/DAY
     Route: 048
     Dates: start: 20040707
  29. GLIBENCLAMIDE [Concomitant]
     Dosage: 0.88 MG, 1X/DAY
     Route: 048
     Dates: start: 20040105, end: 20040707
  30. ASPIRIN ^BAYER^ [Concomitant]
     Dosage: 75 MG, 1X/DAY
     Route: 048
     Dates: start: 20040107
  31. CEFOTAXIME [Concomitant]
     Dosage: 1 G, 1X/DAY
     Route: 042
     Dates: start: 20031223
  32. FLUCONAZOLE [Concomitant]
     Dosage: 50 MG, 1X/DAY
     Route: 048
     Dates: start: 20040224
  33. INSULIN [Concomitant]
     Dosage: 6 IU, AS NEEDED
     Route: 058
     Dates: start: 20031227, end: 20040104
  34. PENTAMIDINE [Concomitant]
     Dosage: 300 MG, 1X/DAY
     Route: 065
     Dates: start: 20040101
  35. TRIMETHOPRIM [Concomitant]
     Dosage: 160 MG, 2X/DAY
     Route: 048
     Dates: start: 20040309, end: 20040319
  36. TRIMETHOPRIM [Concomitant]
     Dosage: 160 MG, 1X/DAY
     Route: 048
     Dates: start: 20040320

REACTIONS (2)
  - Renal impairment [Recovered/Resolved]
  - Gastroenteritis [Recovered/Resolved]
